FAERS Safety Report 10205018 (Version 1)
Quarter: 2014Q2

REPORT INFORMATION
  Report Type: Spontaneous
  Country: US (occurrence: None)
  Receive Date: 20140527
  Receipt Date: 20140527
  Transmission Date: 20141212
  Serious: Yes (Hospitalization)
  Sender: FDA-Public Use
  Company Number: None

PATIENT
  Age: 47 Year
  Sex: Male

DRUGS (1)
  1. PEGFILGRASTIM [Suspect]
     Indication: PROPHYLAXIS
     Route: 058
     Dates: start: 20120514, end: 20120514

REACTIONS (8)
  - Myalgia [None]
  - Arthralgia [None]
  - Pyrexia [None]
  - Chest pain [None]
  - Dyspnoea [None]
  - Nausea [None]
  - Heart rate increased [None]
  - White blood cell count increased [None]
